FAERS Safety Report 7227339-9 (Version None)
Quarter: 2011Q1

REPORT INFORMATION
  Report Type: 
  Country: None (occurrence: None)
  Receive Date: 20110114
  Receipt Date: 20110111
  Transmission Date: 20110831
  Serious: Yes (Death, Other)
  Sender: FDA-Public Use
  Company Number: US-ABBOTT-11P-163-0696532-00

PATIENT
  Sex: Male
  Weight: 99.88 kg

DRUGS (5)
  1. HUMIRA [Suspect]
     Indication: PSORIASIS
     Dates: start: 20090903
  2. HUMIRA [Suspect]
     Dates: start: 20091103
  3. STELARA [Suspect]
     Indication: PSORIASIS
     Dosage: 90MG DAILY
     Route: 058
     Dates: start: 20100310
  4. STELARA [Suspect]
     Dosage: 90MG DAILY
     Route: 058
     Dates: start: 20100409
  5. STELARA [Suspect]
     Dosage: 90MG DAILY
     Route: 058
     Dates: start: 20100729

REACTIONS (20)
  - MYOCARDIAL INFARCTION [None]
  - VENTRICULAR HYPERTROPHY [None]
  - MYOCARDIAL FIBROSIS [None]
  - ACUTE PULMONARY OEDEMA [None]
  - OROPHARYNGEAL PAIN [None]
  - WRONG TECHNIQUE IN DRUG USAGE PROCESS [None]
  - AORTIC ARTERIOSCLEROSIS [None]
  - CORONARY ARTERY STENOSIS [None]
  - VISCERAL CONGESTION [None]
  - PULMONARY CONGESTION [None]
  - ARTERIOSCLEROSIS CORONARY ARTERY [None]
  - CARDIOMEGALY [None]
  - HYPERTENSIVE HEART DISEASE [None]
  - PRURITUS [None]
  - DRUG INEFFECTIVE [None]
  - TREATMENT NONCOMPLIANCE [None]
  - CARDIAC ARREST [None]
  - CONDITION AGGRAVATED [None]
  - SUDDEN DEATH [None]
  - PSORIASIS [None]
